FAERS Safety Report 8217761-6 (Version None)
Quarter: 2012Q1

REPORT INFORMATION
  Report Type: 
  Country: None (occurrence: None)
  Receive Date: 20120319
  Receipt Date: 20120308
  Transmission Date: 20120608
  Serious: Yes (Other)
  Sender: FDA-Public Use
  Company Number: US-JNJFOC-20120306337

PATIENT
  Sex: Female
  Weight: 49.44 kg

DRUGS (2)
  1. DURAGESIC-100 [Suspect]
     Indication: BACK PAIN
     Route: 062
     Dates: start: 20050101, end: 20111201
  2. VERAPAMIL [Concomitant]
     Indication: SINUS TACHYCARDIA
     Route: 048

REACTIONS (6)
  - FIBROMYALGIA [None]
  - RHEUMATOID ARTHRITIS [None]
  - BREAST CANCER [None]
  - OSTEOPENIA [None]
  - FALL [None]
  - OSTEOPOROSIS [None]
